FAERS Safety Report 25386695 (Version 4)
Quarter: 2025Q3

REPORT INFORMATION
  Report Type: Spontaneous
  Country: US (occurrence: US)
  Receive Date: 20250602
  Receipt Date: 20250929
  Transmission Date: 20251020
  Serious: No
  Sender: SANOFI AVENTIS
  Company Number: US-SA-2025SA156116

PATIENT
  Age: 28 Year
  Sex: Male

DRUGS (2)
  1. ALTUVIIIO [Suspect]
     Active Substance: EFANESOCTOCOG ALFA
     Indication: Haemorrhage prophylaxis
     Dosage: 3595 IU(+/-10%) , QW
     Route: 042
  2. ALTUVIIIO [Suspect]
     Active Substance: EFANESOCTOCOG ALFA
     Route: 042

REACTIONS (5)
  - Haemorrhage [Recovering/Resolving]
  - Injury [Unknown]
  - Eye contusion [Unknown]
  - Injury [Unknown]
  - Contusion [Unknown]

NARRATIVE: CASE EVENT DATE: 20250522
